FAERS Safety Report 9998498 (Version 5)
Quarter: 2014Q2

REPORT INFORMATION
  Report Type: Spontaneous
  Country: US (occurrence: US)
  Receive Date: 20140312
  Receipt Date: 20140422
  Transmission Date: 20141212
  Serious: Yes (Disabling)
  Sender: FDA-Public Use
  Company Number: US-BEH-2013038534

PATIENT
  Age: 51 Year
  Sex: Female
  Weight: 90 kg

DRUGS (24)
  1. HIZENTRA [Suspect]
     Route: 058
  2. HIZENTRA [Suspect]
     Indication: HYPOGAMMAGLOBULINAEMIA
     Dosage: MULTIPLE OVER 1-2 HOURS
     Route: 058
  3. AUGMENTIN [Concomitant]
  4. ALLERGY INJECTION [Concomitant]
  5. MELATONIN [Concomitant]
  6. VITAMIN D [Concomitant]
  7. BENTYL [Concomitant]
  8. PROTONIX [Concomitant]
  9. HYOSCYAMINE [Concomitant]
  10. LIBRAX [Concomitant]
  11. XANAX [Concomitant]
  12. NASONEX [Concomitant]
  13. PRAVASTATIN [Concomitant]
  14. LISINOPRIL [Concomitant]
  15. DIFLUCAN [Concomitant]
  16. VICOPROFEN [Concomitant]
  17. CYCLOBENZAPRINE [Concomitant]
  18. TERCONAZOLE [Concomitant]
  19. ACETAMINOPHEN [Concomitant]
  20. DIPHENHYDRAMINE [Concomitant]
  21. LIDOCAINE/PRILOCAINE [Concomitant]
  22. EPI PEN [Concomitant]
  23. LAMICTAL [Concomitant]
  24. PROZAC [Concomitant]

REACTIONS (12)
  - Exposure to mould [Unknown]
  - Aphonia [Unknown]
  - Occupational problem environmental [Unknown]
  - Activities of daily living impaired [Unknown]
  - Insomnia [Unknown]
  - Chest discomfort [Unknown]
  - Dyspnoea [Unknown]
  - Fatigue [Unknown]
  - Fatigue [Unknown]
  - Malaise [Unknown]
  - Chest pain [Unknown]
  - Dyspnoea [Unknown]
